FAERS Safety Report 5862115-0 (Version None)
Quarter: 2008Q3

REPORT INFORMATION
  Report Type: 
  Country: None (occurrence: None)
  Receive Date: 20080826
  Receipt Date: 20080811
  Transmission Date: 20090109
  Serious: Yes (Hospitalization, Disabling)
  Sender: FDA-Public Use
  Company Number: 2008001797

PATIENT
  Age: 67 Year
  Sex: Male

DRUGS (3)
  1. ERLOTINIB (ERLOTINIB) (TABLET) (ERLOTINIB) [Suspect]
     Indication: NON-SMALL CELL LUNG CANCER
     Dosage: (150 MG,QD), ORAL
     Route: 048
     Dates: start: 20080513
  2. METOCLOPRAMIDE [Concomitant]
  3. OMEPRAZOLE [Concomitant]

REACTIONS (10)
  - BALANCE DISORDER [None]
  - BRADYKINESIA [None]
  - BRADYPHRENIA [None]
  - HEADACHE [None]
  - HYPERTENSION [None]
  - NAUSEA [None]
  - PARANEOPLASTIC SYNDROME [None]
  - PERIPHERAL SENSORY NEUROPATHY [None]
  - SOMNOLENCE [None]
  - VOMITING [None]
